FAERS Safety Report 22976112 (Version 2)
Quarter: 2023Q4

REPORT INFORMATION
  Report Type: Spontaneous
  Country: DK (occurrence: DK)
  Receive Date: 20230925
  Receipt Date: 20231010
  Transmission Date: 20240110
  Serious: Yes (Other)
  Sender: FDA-Public Use
  Company Number: DK-NOVOPROD-1119116

PATIENT

DRUGS (3)
  1. SEMAGLUTIDE [Suspect]
     Active Substance: SEMAGLUTIDE
     Indication: Polycystic ovaries
     Dosage: 0.5 MG, QW(FOR 6 MONTHS)
     Route: 064
  2. SEMAGLUTIDE [Suspect]
     Active Substance: SEMAGLUTIDE
     Dosage: 1 MG, QW
     Route: 064
  3. LEVOTHYROXINE [Concomitant]
     Active Substance: LEVOTHYROXINE
     Indication: Myxoedema
     Dosage: UNK
     Route: 064

REACTIONS (4)
  - Shoulder dystocia [Unknown]
  - Foetal macrosomia [Unknown]
  - Hypoglycaemia neonatal [Unknown]
  - Foetal exposure during pregnancy [Recovered/Resolved]
